FAERS Safety Report 8255836-6 (Version None)
Quarter: 2012Q2

REPORT INFORMATION
  Report Type: 
  Country: None (occurrence: None)
  Receive Date: 20120403
  Receipt Date: 20120322
  Transmission Date: 20120825
  Serious: No
  Sender: FDA-Public Use
  Company Number: FR-ACTELION-A-CH2012-60242

PATIENT
  Sex: Female

DRUGS (5)
  1. PLAQUENIL [Concomitant]
  2. TRACLEER [Suspect]
     Indication: SKIN ULCER
     Dosage: 62.5 MG, BID
     Route: 048
     Dates: start: 20091008, end: 20101014
  3. DILTIAZEM HCL [Concomitant]
  4. CHLORMADINONE ACETATE TAB [Suspect]
  5. ACETAMINOPHEN AND TRAMADOL HCL [Concomitant]

REACTIONS (3)
  - DRUG INTERACTION [None]
  - LIVE BIRTH [None]
  - PREGNANCY [None]
